FAERS Safety Report 6430278-4 (Version None)
Quarter: 2009Q4

REPORT INFORMATION
  Report Type: 
  Country: None (occurrence: None)
  Receive Date: 20091106
  Receipt Date: 20090515
  Transmission Date: 20100525
  Serious: No
  Sender: FDA-Public Use
  Company Number: US-ABBOTT-09P-163-0573844-00

PATIENT
  Sex: Male
  Weight: 83.082 kg

DRUGS (4)
  1. KALETRA [Suspect]
     Indication: HIV TEST POSITIVE
     Dosage: 400/100/5 MG - 1 TSP DAILY
     Route: 048
     Dates: start: 20090514
  2. VIREAD [Concomitant]
     Indication: HIV INFECTION
     Route: 048
  3. ZIATIN [Concomitant]
     Indication: DRUG USE FOR UNKNOWN INDICATION
  4. SIAGEN [Concomitant]
     Indication: HIV INFECTION
     Route: 048

REACTIONS (2)
  - FEELING HOT [None]
  - ORAL DISCOMFORT [None]
